FAERS Safety Report 4548324-1 (Version None)
Quarter: 2005Q1

REPORT INFORMATION
  Report Type: 
  Country: None (occurrence: None)
  Receive Date: 20050106
  Receipt Date: 20050106
  Transmission Date: 20050727
  Serious: Yes (Hospitalization)
  Sender: FDA-Public Use
  Company Number: None

PATIENT
  Age: 54 Year
  Sex: Male
  Weight: 88 kg

DRUGS (16)
  1. FLUCONAZOLE [Suspect]
     Indication: BACTERIA SPUTUM IDENTIFIED
     Dosage: 400MG   IV
     Route: 042
     Dates: start: 20040825, end: 20040831
  2. FLUCONAZOLE [Suspect]
     Indication: CANDIDIASIS
     Dosage: 400MG   IV
     Route: 042
     Dates: start: 20040825, end: 20040831
  3. FLUCONAZOLE [Suspect]
     Indication: BACTERIA SPUTUM IDENTIFIED
     Dosage: 400MG   PO
     Route: 048
     Dates: start: 20040901, end: 20040902
  4. FLUCONAZOLE [Suspect]
     Indication: CANDIDIASIS
     Dosage: 400MG   PO
     Route: 048
     Dates: start: 20040901, end: 20040902
  5. ACETAMINOPHEN [Concomitant]
  6. CEFTAZIDIME [Concomitant]
  7. FLUCONAZOLE [Concomitant]
  8. GATIFLOXACIN [Concomitant]
  9. LORAZEPAM [Concomitant]
  10. METOCLOPRAMIDE HCL [Concomitant]
  11. ONDANSETRON HCL [Concomitant]
  12. PANTOPRAZOLE [Concomitant]
  13. PROMETHAZINE HCL [Concomitant]
  14. SODIUM CHLORIDE [Concomitant]
  15. TRAZODONE HCL [Concomitant]
  16. VANCOMYCIN [Concomitant]

REACTIONS (1)
  - LIVER FUNCTION TEST ABNORMAL [None]
